FAERS Safety Report 17442596 (Version 2)
Quarter: 2020Q2

REPORT INFORMATION
  Report Type: Spontaneous
  Country: US (occurrence: US)
  Receive Date: 20200220
  Receipt Date: 20200415
  Transmission Date: 20200713
  Serious: No
  Sender: FDA-Public Use
  Company Number: US-AMGEN-USASP2020028423

PATIENT
  Age: 52 Year
  Sex: Female

DRUGS (1)
  1. AIMOVIG [Suspect]
     Active Substance: ERENUMAB-AOOE
     Indication: MIGRAINE
     Dosage: 70 MILLIGRAM
     Route: 065
     Dates: start: 20190101, end: 20190101

REACTIONS (23)
  - Nausea [Recovered/Resolved]
  - Heart rate increased [Recovered/Resolved]
  - Pain in jaw [Recovered/Resolved]
  - Paraesthesia [Recovered/Resolved]
  - Chest discomfort [Recovered/Resolved]
  - Dyspepsia [Recovered/Resolved]
  - Insomnia [Recovered/Resolved]
  - Arthralgia [Recovered/Resolved]
  - Drug ineffective [Unknown]
  - Abdominal pain upper [Recovered/Resolved]
  - Ear pain [Recovered/Resolved]
  - Acne [Recovered/Resolved]
  - Back pain [Recovered/Resolved]
  - Fatigue [Recovered/Resolved]
  - Tinnitus [Recovered/Resolved]
  - Mood swings [Recovered/Resolved]
  - Migraine [Recovered/Resolved]
  - Diarrhoea [Recovered/Resolved]
  - Weight increased [Recovered/Resolved]
  - Anxiety [Recovered/Resolved]
  - Neck pain [Recovered/Resolved]
  - Myalgia [Recovered/Resolved]
  - Constipation [Recovered/Resolved]

NARRATIVE: CASE EVENT DATE: 2019
